FAERS Safety Report 7354540-6 (Version None)
Quarter: 2011Q1

REPORT INFORMATION
  Report Type: 
  Country: None (occurrence: None)
  Receive Date: 20110316
  Receipt Date: 20100928
  Transmission Date: 20110831
  Serious: Yes (Other)
  Sender: FDA-Public Use
  Company Number: US-BAYER-201034858NA

PATIENT
  Sex: Female
  Weight: 52.154 kg

DRUGS (5)
  1. REGLAN [Concomitant]
  2. OCELLA [Suspect]
  3. YASMIN [Suspect]
     Indication: DYSMENORRHOEA
     Dosage: UNK
     Dates: start: 20010101, end: 20030101
  4. YAZ [Suspect]
  5. YASMIN [Suspect]
     Indication: MENORRHAGIA

REACTIONS (3)
  - CHOLECYSTITIS [None]
  - GALLBLADDER DISORDER [None]
  - INJURY [None]
